FAERS Safety Report 16575427 (Version 1)
Quarter: 2019Q3

REPORT INFORMATION
  Report Type: Spontaneous
  Country: US (occurrence: US)
  Receive Date: 20190716
  Receipt Date: 20190716
  Transmission Date: 20191004
  Serious: No
  Sender: FDA-Public Use
  Company Number: US-AMGEN-USASP2019110466

PATIENT
  Age: 62 Year
  Sex: Female

DRUGS (1)
  1. XGEVA [Suspect]
     Active Substance: DENOSUMAB
     Indication: BREAST CANCER
     Dosage: UNK, QMO
     Route: 065
     Dates: start: 201810

REACTIONS (4)
  - Tooth fracture [Unknown]
  - Mouth swelling [Unknown]
  - Pain in jaw [Unknown]
  - Tooth infection [Unknown]

NARRATIVE: CASE EVENT DATE: 2019
